APPROVED DRUG PRODUCT: GEMCITABINE HYDROCHLORIDE
Active Ingredient: GEMCITABINE HYDROCHLORIDE
Strength: 200MG/5.26ML (38MG/ML)
Dosage Form/Route: INJECTABLE;INJECTION
Application: A213175 | Product #001 | TE Code: AP
Applicant: HIKMA PHARMACEUTICALS INTERNATIONAL LTD
Approved: Mar 7, 2023 | RLD: No | RS: No | Type: RX